FAERS Safety Report 4762626-5 (Version None)
Quarter: 2005Q3

REPORT INFORMATION
  Report Type: 
  Country: None (occurrence: None)
  Receive Date: 20050907
  Receipt Date: 20050831
  Transmission Date: 20060218
  Serious: Yes (Hospitalization)
  Sender: FDA-Public Use
  Company Number: FR-GLAXOSMITHKLINE-B0392363A

PATIENT
  Age: 45 Year
  Sex: Female
  Weight: 58 kg

DRUGS (1)
  1. MALARONE [Suspect]
     Indication: MALARIA
     Dosage: 4TAB PER DAY
     Route: 048
     Dates: start: 20050808, end: 20050810

REACTIONS (2)
  - GASTROINTESTINAL DISORDER [None]
  - VOMITING [None]
